FAERS Safety Report 9175764 (Version 4)
Quarter: 2013Q2

REPORT INFORMATION
  Report Type: Spontaneous
  Country: US (occurrence: US)
  Receive Date: 20130320
  Receipt Date: 20130513
  Transmission Date: 20140414
  Serious: Yes (Other)
  Sender: FDA-Public Use
  Company Number: US-PFIZER INC-2013091729

PATIENT
  Sex: Female

DRUGS (2)
  1. LYRICA [Suspect]
     Dosage: UNK
  2. ARTHROTEC [Suspect]
     Dosage: UNK

REACTIONS (3)
  - Back disorder [Unknown]
  - Ulcer [Unknown]
  - Insomnia [Unknown]
